FAERS Safety Report 15685586 (Version 1)
Quarter: 2018Q4

REPORT INFORMATION
  Report Type: Spontaneous
  Country: FR (occurrence: FR)
  Receive Date: 20181204
  Receipt Date: 20181204
  Transmission Date: 20190205
  Serious: Yes (Other)
  Sender: FDA-Public Use
  Company Number: FR-GUERBET-FR-20180683

PATIENT
  Age: 52 Year
  Sex: Male

DRUGS (2)
  1. GLUBRAN 2 [Suspect]
     Active Substance: DEVICE
     Indication: SCLEROTHERAPY
     Dosage: DOSE OF 2 ML AT  A RATIO OF 1:1 WITH LIPIODOL
     Route: 065
  2. LIPIODOL [Suspect]
     Active Substance: ETHIODIZED OIL
     Indication: SCLEROTHERAPY
     Dosage: DOSE OF 2 ML AT  A RATIO OF 1:1 WITH GLUBRAN 2
     Route: 065

REACTIONS (4)
  - Cerebral infarction [Not Recovered/Not Resolved]
  - Pulmonary embolism [Not Recovered/Not Resolved]
  - Peripheral embolism [Not Recovered/Not Resolved]
  - Product use in unapproved indication [Not Recovered/Not Resolved]
